FAERS Safety Report 19561876 (Version 1)
Quarter: 2021Q3

REPORT INFORMATION
  Report Type: Spontaneous
  Country: US (occurrence: US)
  Receive Date: 20210715
  Receipt Date: 20210715
  Transmission Date: 20211014
  Serious: Yes (Other)
  Sender: FDA-Public Use
  Company Number: None

PATIENT

DRUGS (1)
  1. CHILDRENS ADVIL [Suspect]
     Active Substance: IBUPROFEN

REACTIONS (3)
  - Milk allergy [None]
  - Allergic reaction to excipient [None]
  - Product use complaint [None]

NARRATIVE: CASE EVENT DATE: 20210715
